FAERS Safety Report 6628603-4 (Version None)
Quarter: 2010Q1

REPORT INFORMATION
  Report Type: 
  Country: None (occurrence: None)
  Receive Date: 20100311
  Receipt Date: 20100304
  Transmission Date: 20100710
  Serious: Yes (Other)
  Sender: FDA-Public Use
  Company Number: FR-ABBOTT-10P-056-0630417-00

PATIENT
  Sex: Female

DRUGS (2)
  1. DEPAKENE [Suspect]
     Indication: DRUG USE FOR UNKNOWN INDICATION
     Dosage: 500 MG X 1-1/2 TABLETS
     Route: 048
  2. ISOPTIN [Concomitant]
     Indication: DRUG USE FOR UNKNOWN INDICATION

REACTIONS (1)
  - CYTOLYTIC HEPATITIS [None]
